FAERS Safety Report 24288652 (Version 1)
Quarter: 2024Q3

REPORT INFORMATION
  Report Type: Spontaneous
  Country: CA (occurrence: CA)
  Receive Date: 20240906
  Receipt Date: 20240906
  Transmission Date: 20241017
  Serious: Yes (Death, Life-Threatening, Hospitalization, Disabling, Congenital Anomaly, Other)
  Sender: SANDOZ
  Company Number: CA-Novartis Pharma AG-NVSC2021CA318086

PATIENT
  Age: 43 Year
  Sex: Female
  Weight: 96 kg

DRUGS (373)
  1. ADALIMUMAB [Suspect]
     Active Substance: ADALIMUMAB
     Indication: Product used for unknown indication
     Dosage: 40 MG
     Route: 058
  2. ADALIMUMAB [Suspect]
     Active Substance: ADALIMUMAB
     Dosage: 4
     Route: 065
  3. ALENDRONATE SODIUM [Suspect]
     Active Substance: ALENDRONATE SODIUM
     Indication: Rheumatoid arthritis
     Dosage: UNK
     Route: 048
  4. APREMILAST [Suspect]
     Active Substance: APREMILAST
     Dosage: 3 MG, QD
     Route: 065
  5. APREMILAST [Suspect]
     Active Substance: APREMILAST
     Indication: Product used for unknown indication
     Dosage: 3 MG, Q12H
     Route: 065
  6. ABATACEPT [Suspect]
     Active Substance: ABATACEPT
     Dosage: UNK
     Route: 048
  7. ABATACEPT [Suspect]
     Active Substance: ABATACEPT
     Dosage: UNK
     Route: 048
  8. ABATACEPT [Suspect]
     Active Substance: ABATACEPT
     Indication: Product used for unknown indication
     Dosage: UNK
     Route: 065
  9. ABATACEPT [Suspect]
     Active Substance: ABATACEPT
     Dosage: UNK
     Route: 065
  10. ACETAMINOPHEN [Suspect]
     Active Substance: ACETAMINOPHEN
     Dosage: 1 MG, UNKNOWN
     Route: 042
  11. ACETAMINOPHEN [Suspect]
     Active Substance: ACETAMINOPHEN
     Dosage: 40 MG, UNKNOWN
     Route: 065
  12. ACETAMINOPHEN [Suspect]
     Active Substance: ACETAMINOPHEN
     Dosage: 5 MG, UNKNOWN
     Route: 065
  13. ACETAMINOPHEN [Suspect]
     Active Substance: ACETAMINOPHEN
     Dosage: 7.5 MG
     Route: 048
  14. ACETAMINOPHEN [Suspect]
     Active Substance: ACETAMINOPHEN
     Indication: Product used for unknown indication
     Dosage: UNK
     Route: 048
  15. ACETAMINOPHEN [Suspect]
     Active Substance: ACETAMINOPHEN
     Dosage: UNK
     Route: 065
  16. ACTEMRA [Suspect]
     Active Substance: TOCILIZUMAB
     Indication: Rheumatoid arthritis
     Dosage: 10 MG
     Route: 048
  17. ACTEMRA [Suspect]
     Active Substance: TOCILIZUMAB
     Dosage: UNK
     Route: 065
  18. DICLOFENAC SODIUM [Suspect]
     Active Substance: DICLOFENAC\DICLOFENAC SODIUM
     Dosage: 40 MG
     Route: 065
  19. DICLOFENAC SODIUM [Suspect]
     Active Substance: DICLOFENAC\DICLOFENAC SODIUM
     Indication: Rheumatoid arthritis
     Dosage: UNK
     Route: 065
  20. DICLOFENAC SODIUM [Suspect]
     Active Substance: DICLOFENAC\DICLOFENAC SODIUM
     Dosage: UNK
     Route: 065
  21. DICLOFENAC SODIUM [Suspect]
     Active Substance: DICLOFENAC\DICLOFENAC SODIUM
     Dosage: UNK
     Route: 065
  22. PREDNISONE [Suspect]
     Active Substance: PREDNISONE
     Indication: Rheumatoid arthritis
     Dosage: UNK
     Route: 065
  23. PREDNISONE [Suspect]
     Active Substance: PREDNISONE
     Indication: Arthritis
  24. ARAVA [Suspect]
     Active Substance: LEFLUNOMIDE
     Indication: Rheumatoid arthritis
     Dosage: UNK
     Route: 065
  25. BENZOCAINE [Suspect]
     Active Substance: BENZOCAINE
     Indication: Migraine
     Dosage: UNK
     Route: 065
  26. BENZOCAINE [Suspect]
     Active Substance: BENZOCAINE
     Dosage: UNK
     Route: 065
  27. BERINERT [Suspect]
     Active Substance: HUMAN C1-ESTERASE INHIBITOR
     Indication: Rheumatoid arthritis
     Dosage: UNK
     Route: 065
  28. BERINERT [Suspect]
     Active Substance: HUMAN C1-ESTERASE INHIBITOR
     Dosage: UNK
     Route: 065
  29. BERINERT [Suspect]
     Active Substance: HUMAN C1-ESTERASE INHIBITOR
     Dosage: UNK
     Route: 065
  30. BOTULINUM TOXIN TYPE A [Suspect]
     Active Substance: BOTULINUM TOXIN TYPE A
     Indication: Product used for unknown indication
     Dosage: UNK
     Route: 048
  31. CANDESARTAN [Suspect]
     Active Substance: CANDESARTAN
     Dosage: UNK
     Route: 048
  32. CANDESARTAN [Suspect]
     Active Substance: CANDESARTAN
     Indication: Product used for unknown indication
     Dosage: UNK
     Route: 058
  33. CANDESARTAN [Suspect]
     Active Substance: CANDESARTAN
     Dosage: UNK
     Route: 065
  34. CALCIUM CARBONATE [Suspect]
     Active Substance: CALCIUM CARBONATE
     Indication: Product used for unknown indication
     Dosage: 10 MG
     Route: 065
  35. CALCIUM CARBONATE [Suspect]
     Active Substance: CALCIUM CARBONATE
     Dosage: 10 MG
     Route: 065
  36. CALCIUM CHLORIDE [Suspect]
     Active Substance: CALCIUM CHLORIDE
     Indication: Product used for unknown indication
     Dosage: UNK
     Route: 048
  37. CALCIUM GLUBIONATE [Suspect]
     Active Substance: CALCIUM GLUBIONATE
     Indication: Rheumatoid arthritis
     Dosage: UNK
     Route: 065
  38. CALCIUM GLUBIONATE [Suspect]
     Active Substance: CALCIUM GLUBIONATE
     Dosage: UNK
     Route: 065
  39. CALCIUM GLUBIONATE [Suspect]
     Active Substance: CALCIUM GLUBIONATE
     Dosage: UNK
     Route: 065
  40. CALCIUM GLUBIONATE [Suspect]
     Active Substance: CALCIUM GLUBIONATE
     Dosage: UNK
     Route: 065
  41. CALCIUM GLUBIONATE [Suspect]
     Active Substance: CALCIUM GLUBIONATE
     Dosage: UNK
     Route: 065
  42. CALCIUM GLUBIONATE [Suspect]
     Active Substance: CALCIUM GLUBIONATE
     Dosage: UNK
     Route: 065
  43. CELEBREX [Suspect]
     Active Substance: CELECOXIB
     Indication: Product used for unknown indication
     Dosage: 1 DF
     Route: 065
  44. CERTOLIZUMAB PEGOL [Suspect]
     Active Substance: CERTOLIZUMAB PEGOL
     Indication: Rheumatoid arthritis
     Dosage: 10 MG
     Route: 065
  45. CERTOLIZUMAB PEGOL [Suspect]
     Active Substance: CERTOLIZUMAB PEGOL
     Dosage: UNK
     Route: 065
  46. CERTOLIZUMAB PEGOL [Suspect]
     Active Substance: CERTOLIZUMAB PEGOL
     Dosage: UNK
     Route: 065
  47. CETIRIZINE [Suspect]
     Active Substance: CETIRIZINE HYDROCHLORIDE
     Indication: Rheumatoid arthritis
     Dosage: UNK
     Route: 003
  48. CETIRIZINE HYDROCHLORIDE [Suspect]
     Active Substance: CETIRIZINE HYDROCHLORIDE
     Indication: Rheumatoid arthritis
     Dosage: UNK
     Route: 065
  49. CETRIMONIUM BROMIDE [Suspect]
     Active Substance: CETRIMONIUM BROMIDE
     Indication: Product used for unknown indication
     Dosage: UNK
     Route: 065
  50. CETRIMONIUM BROMIDE [Suspect]
     Active Substance: CETRIMONIUM BROMIDE
     Dosage: UNK
     Route: 065
  51. CETRIMONIUM BROMIDE [Suspect]
     Active Substance: CETRIMONIUM BROMIDE
     Dosage: UNK
     Route: 065
  52. CETRIMONIUM BROMIDE [Suspect]
     Active Substance: CETRIMONIUM BROMIDE
     Dosage: UNK
     Route: 065
  53. CHLORAPREP [Suspect]
     Active Substance: CHLORHEXIDINE GLUCONATE\ISOPROPYL ALCOHOL
     Indication: Product used for unknown indication
     Dosage: 10 MG, QD
     Route: 048
  54. CHLORAPREP [Suspect]
     Active Substance: CHLORHEXIDINE GLUCONATE\ISOPROPYL ALCOHOL
     Dosage: 20 MG, QD
     Route: 048
  55. CHLORHEXIDINE ACETATE [Suspect]
     Active Substance: CHLORHEXIDINE ACETATE
     Indication: Rheumatoid arthritis
     Dosage: UNK
     Route: 065
  56. CIMZIA [Suspect]
     Active Substance: CERTOLIZUMAB PEGOL
     Indication: Rheumatoid arthritis
     Dosage: UNK
     Route: 065
  57. CORTISONE [Suspect]
     Active Substance: CORTISONE
     Indication: Rheumatoid arthritis
     Dosage: UNK
     Route: 065
  58. CORTISONE ACETATE [Suspect]
     Active Substance: CORTISONE ACETATE
     Indication: Product used for unknown indication
     Dosage: UNK
     Route: 065
  59. COSENTYX [Suspect]
     Active Substance: SECUKINUMAB
     Indication: Psoriatic arthropathy
     Dosage: UNK (INJECTION NOT OTHERWISE SPECIFIED)
     Route: 065
  60. COSENTYX [Suspect]
     Active Substance: SECUKINUMAB
     Indication: Rheumatoid arthritis
  61. DICLOFENAC [Suspect]
     Active Substance: DICLOFENAC
     Dosage: 50 MG
     Route: 065
  62. DICLOFENAC [Suspect]
     Active Substance: DICLOFENAC
     Indication: Rheumatoid arthritis
     Dosage: UNK
     Route: 065
  63. DICLOFENAC SODIUM [Suspect]
     Active Substance: DICLOFENAC\DICLOFENAC SODIUM
     Dosage: 50 MG
     Route: 065
  64. DICLOFENAC SODIUM [Suspect]
     Active Substance: DICLOFENAC\DICLOFENAC SODIUM
     Dosage: UNK
     Route: 065
  65. DICLOFENAC SODIUM [Suspect]
     Active Substance: DICLOFENAC\DICLOFENAC SODIUM
     Indication: Rheumatoid arthritis
     Dosage: UNK MG
     Route: 058
  66. DOMPERIDONE MALEATE [Suspect]
     Active Substance: DOMPERIDONE MALEATE
     Indication: Product used for unknown indication
     Dosage: UNK
     Route: 058
  67. DOMPERIDONE MALEATE [Suspect]
     Active Substance: DOMPERIDONE MALEATE
     Dosage: UNK
     Route: 065
  68. ERELZI [Suspect]
     Active Substance: ETANERCEPT-SZZS
     Dosage: 20 MG, QW
     Route: 058
  69. ERELZI [Suspect]
     Active Substance: ETANERCEPT-SZZS
     Dosage: 50 MG, QW
     Route: 065
  70. ERELZI [Suspect]
     Active Substance: ETANERCEPT-SZZS
     Indication: Rheumatoid arthritis
     Dosage: 50 MG, QW (1 EVERY 1 WEEKS)
     Route: 058
  71. ERELZI [Suspect]
     Active Substance: ETANERCEPT-SZZS
     Dosage: UNK
     Route: 058
  72. ENBREL [Suspect]
     Active Substance: ETANERCEPT
     Dosage: 20 MG, QW
     Route: 058
  73. ENBREL [Suspect]
     Active Substance: ETANERCEPT
     Indication: Psoriatic arthropathy
     Dosage: 20 MG, QW (1 EVERY 1 WEEKS)
     Route: 058
  74. ENBREL [Suspect]
     Active Substance: ETANERCEPT
     Dosage: 50 MG, QW (1 EVERY 1 WEEKS)
     Route: 058
  75. ENBREL [Suspect]
     Active Substance: ETANERCEPT
     Indication: Rheumatoid arthritis
     Dosage: UNK
     Route: 058
  76. FLUMETHASONE PIVALATE [Suspect]
     Active Substance: FLUMETHASONE PIVALATE
     Indication: Rheumatoid arthritis
     Dosage: UNK
     Route: 058
  77. FOLIC ACID [Suspect]
     Active Substance: FOLIC ACID
     Dosage: 0.5 MG
     Route: 065
  78. FOLIC ACID [Suspect]
     Active Substance: FOLIC ACID
     Dosage: 1 MG
     Route: 058
  79. FOLIC ACID [Suspect]
     Active Substance: FOLIC ACID
     Dosage: 1 MG
     Route: 065
  80. FOLIC ACID [Suspect]
     Active Substance: FOLIC ACID
     Dosage: 15 MG
     Route: 048
  81. FOLIC ACID [Suspect]
     Active Substance: FOLIC ACID
     Dosage: 25 MG
     Route: 048
  82. FOLIC ACID [Suspect]
     Active Substance: FOLIC ACID
     Dosage: 3 MG
     Route: 065
  83. FOLIC ACID [Suspect]
     Active Substance: FOLIC ACID
     Dosage: 5 MG
     Route: 065
  84. FOLIC ACID [Suspect]
     Active Substance: FOLIC ACID
     Dosage: 50 MG
     Route: 065
  85. FOLIC ACID [Suspect]
     Active Substance: FOLIC ACID
     Indication: Rheumatoid arthritis
     Dosage: 500 MG
     Route: 048
  86. FOLIC ACID [Suspect]
     Active Substance: FOLIC ACID
     Dosage: UNK
     Route: 065
  87. FOSAMAX [Suspect]
     Active Substance: ALENDRONATE SODIUM
     Dosage: UNK
     Route: 048
  88. FOSAMAX [Suspect]
     Active Substance: ALENDRONATE SODIUM
     Indication: Rheumatoid arthritis
     Dosage: UNK
     Route: 058
  89. GOLD [Suspect]
     Active Substance: GOLD
     Indication: Product used for unknown indication
     Dosage: 50 MG
     Route: 065
  90. GOLD [Suspect]
     Active Substance: GOLD
     Dosage: UNK
     Route: 042
  91. GOLD [Suspect]
     Active Substance: GOLD
     Dosage: UNK
     Route: 042
  92. GOLD [Suspect]
     Active Substance: GOLD
     Dosage: UNK
     Route: 058
  93. GOLD SODIUM THIOMALATE [Suspect]
     Active Substance: GOLD SODIUM THIOMALATE
     Dosage: UNK
     Route: 058
  94. GOLD SODIUM THIOMALATE [Suspect]
     Active Substance: GOLD SODIUM THIOMALATE
     Indication: Rheumatoid arthritis
     Dosage: UNK
     Route: 065
  95. GOLD SODIUM THIOMALATE [Suspect]
     Active Substance: GOLD SODIUM THIOMALATE
     Dosage: UNK
     Route: 065
  96. GOLIMUMAB [Suspect]
     Active Substance: GOLIMUMAB
     Dosage: 40 MG
     Route: 058
  97. GOLIMUMAB [Suspect]
     Active Substance: GOLIMUMAB
     Dosage: UNK
     Route: 058
  98. GOLIMUMAB [Suspect]
     Active Substance: GOLIMUMAB
     Dosage: UNK
     Route: 058
  99. GOLIMUMAB [Suspect]
     Active Substance: GOLIMUMAB
     Indication: Rheumatoid arthritis
     Dosage: UNK
     Route: 065
  100. HUMIRA [Suspect]
     Active Substance: ADALIMUMAB
     Indication: Product used for unknown indication
     Dosage: UNK
     Route: 057
  101. HUMIRA [Suspect]
     Active Substance: ADALIMUMAB
     Dosage: UNK
     Route: 065
  102. HUMIRA [Suspect]
     Active Substance: ADALIMUMAB
     Dosage: UNK
     Route: 065
  103. HYDROCORTISONE ACETATE [Suspect]
     Active Substance: HYDROCORTISONE ACETATE
     Dosage: UNK
     Route: 065
  104. HYDROCORTISONE ACETATE [Suspect]
     Active Substance: HYDROCORTISONE ACETATE
     Indication: Product used for unknown indication
     Route: 065
  105. HYDROCORTISONE BUTYRATE [Suspect]
     Active Substance: HYDROCORTISONE BUTYRATE
     Dosage: 50 MG
     Route: 065
  106. HYDROCORTISONE BUTYRATE [Suspect]
     Active Substance: HYDROCORTISONE BUTYRATE
     Dosage: UNK
     Route: 058
  107. HYDROCORTISONE BUTYRATE [Suspect]
     Active Substance: HYDROCORTISONE BUTYRATE
     Indication: Product used for unknown indication
     Dosage: UNK
     Route: 065
  108. HYDROCORTISONE BUTYRATE [Suspect]
     Active Substance: HYDROCORTISONE BUTYRATE
     Dosage: UNK
     Route: 065
  109. HYDROXYCHLOROQUINE [Suspect]
     Active Substance: HYDROXYCHLOROQUINE
     Indication: Product used for unknown indication
     Dosage: UNK
     Route: 065
  110. HYDROXYCHLOROQUINE SULFATE [Suspect]
     Active Substance: HYDROXYCHLOROQUINE SULFATE
     Dosage: 500 MG
     Route: 048
  111. HYDROXYCHLOROQUINE SULFATE [Suspect]
     Active Substance: HYDROXYCHLOROQUINE SULFATE
     Indication: Rheumatoid arthritis
     Dosage: 500 MG
     Route: 065
  112. INFLIXIMAB [Suspect]
     Active Substance: INFLIXIMAB
     Indication: Product used for unknown indication
     Dosage: UNK
     Route: 065
  113. ISOPROPANOLAMINE [Suspect]
     Active Substance: ISOPROPANOLAMINE
     Indication: Product used for unknown indication
     Dosage: UNK
     Route: 016
  114. ISOPROPANOLAMINE [Suspect]
     Active Substance: ISOPROPANOLAMINE
     Dosage: UNK
     Route: 048
  115. ISOPROPANOLAMINE [Suspect]
     Active Substance: ISOPROPANOLAMINE
     Dosage: UNK
     Route: 065
  116. ISOPROPYL ALCOHOL [Suspect]
     Active Substance: ISOPROPYL ALCOHOL
     Indication: Product used for unknown indication
     Dosage: UNK
     Route: 065
  117. ISOPROPYL ALCOHOL [Suspect]
     Active Substance: ISOPROPYL ALCOHOL
     Dosage: UNK
     Route: 065
  118. ISOPROPYL ALCOHOL [Suspect]
     Active Substance: ISOPROPYL ALCOHOL
     Dosage: UNK
     Route: 065
  119. ISOPROPYL ALCOHOL [Suspect]
     Active Substance: ISOPROPYL ALCOHOL
     Dosage: UNK
     Route: 065
  120. ISOPROPYL ALCOHOL [Suspect]
     Active Substance: ISOPROPYL ALCOHOL
     Dosage: UNK
     Route: 065
  121. LEFLUNOMIDE [Suspect]
     Active Substance: LEFLUNOMIDE
     Indication: Rheumatoid arthritis
     Dosage: 5 MG, BID (2 EVERY 1 DAYS)
     Route: 065
  122. LEFLUNOMIDE [Suspect]
     Active Substance: LEFLUNOMIDE
     Dosage: 5 MG, QD
     Route: 065
  123. LEFLUNOMIDE [Suspect]
     Active Substance: LEFLUNOMIDE
     Dosage: 5 MG, QD
     Route: 065
  124. LEFLUNOMIDE [Suspect]
     Active Substance: LEFLUNOMIDE
     Dosage: 5 MG, QD
     Route: 065
  125. LEFLUNOMIDE [Suspect]
     Active Substance: LEFLUNOMIDE
     Dosage: 5 MG, QD
     Route: 065
  126. LEFLUNOMIDE [Suspect]
     Active Substance: LEFLUNOMIDE
     Dosage: 5 MG, QD
     Route: 065
  127. LEFLUNOMIDE [Suspect]
     Active Substance: LEFLUNOMIDE
     Dosage: UNK
     Route: 065
  128. LYRICA [Suspect]
     Active Substance: PREGABALIN
     Indication: Rheumatoid arthritis
     Dosage: UNK
     Route: 065
  129. METHOTREXATE [Suspect]
     Active Substance: METHOTREXATE
     Dosage: 1 MG, QD
     Route: 065
  130. METHOTREXATE [Suspect]
     Active Substance: METHOTREXATE
     Dosage: 1 MG
     Route: 048
  131. METHOTREXATE [Suspect]
     Active Substance: METHOTREXATE
     Dosage: 1 DOSAGE FORM
     Route: 048
  132. METHOTREXATE [Suspect]
     Active Substance: METHOTREXATE
     Dosage: 15 MG, QD
     Route: 065
  133. METHOTREXATE [Suspect]
     Active Substance: METHOTREXATE
     Dosage: 2 DOSAGE FORM, QD
     Route: 048
  134. METHOTREXATE [Suspect]
     Active Substance: METHOTREXATE
     Dosage: 20 MG, QD (1 EVERY 1 DAYS)
     Route: 048
  135. METHOTREXATE [Suspect]
     Active Substance: METHOTREXATE
     Dosage: 20 MG, QD (1 EVERY 1 DAYS)
     Route: 065
  136. METHOTREXATE [Suspect]
     Active Substance: METHOTREXATE
     Dosage: 25 MG, QW (1 EVERY 1 WEEKS)
     Route: 013
  137. METHOTREXATE [Suspect]
     Active Substance: METHOTREXATE
     Indication: Product used for unknown indication
     Dosage: 25 MG, QW (1 EVERY 1 WEEKS)
     Route: 048
  138. METHOTREXATE [Suspect]
     Active Substance: METHOTREXATE
     Dosage: 25 MG, QD
     Route: 065
  139. METHOTREXATE [Suspect]
     Active Substance: METHOTREXATE
     Dosage: 25 MG
     Route: 048
  140. METHOTREXATE [Suspect]
     Active Substance: METHOTREXATE
     Dosage: 25 MG
     Route: 065
  141. METHOTREXATE [Suspect]
     Active Substance: METHOTREXATE
     Dosage: UNK QD (1 EVERY 1 DAYS)
     Route: 048
  142. METHOTREXATE [Suspect]
     Active Substance: METHOTREXATE
     Dosage: UNK
     Route: 048
  143. METHOTREXATE [Suspect]
     Active Substance: METHOTREXATE
     Dosage: UNK
     Route: 058
  144. METHOTREXATE [Suspect]
     Active Substance: METHOTREXATE
     Dosage: UNK
     Route: 065
  145. METHOTREXATE [Suspect]
     Active Substance: METHOTREXATE
     Dosage: UNK
     Route: 065
  146. MYCOPHENOLATE MOFETIL [Suspect]
     Active Substance: MYCOPHENOLATE MOFETIL
     Indication: Rheumatoid arthritis
     Dosage: UNK
     Route: 065
  147. MEGLUMINE [Suspect]
     Active Substance: MEGLUMINE
     Indication: Product used for unknown indication
     Dosage: 10 MG, QD
     Route: 048
  148. MEGLUMINE [Suspect]
     Active Substance: MEGLUMINE
     Dosage: 20 MG, QD
     Route: 065
  149. METHYLPREDNISOLONE SODIUM SUCCINATE [Suspect]
     Active Substance: METHYLPREDNISOLONE SODIUM SUCCINATE
     Dosage: UNK
     Route: 048
  150. METHYLPREDNISOLONE SODIUM SUCCINATE [Suspect]
     Active Substance: METHYLPREDNISOLONE SODIUM SUCCINATE
     Indication: Rheumatoid arthritis
     Dosage: UNK
     Route: 065
  151. NAPROXEN [Suspect]
     Active Substance: NAPROXEN
     Dosage: 50 MG
     Route: 065
  152. NAPROXEN [Suspect]
     Active Substance: NAPROXEN
     Dosage: UNK
     Route: 058
  153. NAPROXEN [Suspect]
     Active Substance: NAPROXEN
     Indication: Product used for unknown indication
     Dosage: UNK
     Route: 065
  154. NAPROXEN SODIUM [Suspect]
     Active Substance: NAPROXEN\NAPROXEN SODIUM
     Indication: Rheumatoid arthritis
     Dosage: 500 MG, BID (2 EVERY 1 DAYS)
     Route: 065
  155. NAPROXEN SODIUM [Suspect]
     Active Substance: NAPROXEN\NAPROXEN SODIUM
     Dosage: 500 MG
     Route: 065
  156. NUCALA [Suspect]
     Active Substance: MEPOLIZUMAB
     Dosage: 1 MG
     Route: 065
  157. NUCALA [Suspect]
     Active Substance: MEPOLIZUMAB
     Dosage: 40 MG
     Route: 065
  158. NUCALA [Suspect]
     Active Substance: MEPOLIZUMAB
     Dosage: 5 MG
     Route: 065
  159. NUCALA [Suspect]
     Active Substance: MEPOLIZUMAB
     Dosage: 7.5 MG
     Route: 048
  160. NUCALA [Suspect]
     Active Substance: MEPOLIZUMAB
     Indication: Product used for unknown indication
     Dosage: UNK
     Route: 065
  161. NUCALA [Suspect]
     Active Substance: MEPOLIZUMAB
     Dosage: UNK
     Route: 065
  162. OXYCODONE [Suspect]
     Active Substance: OXYCODONE
     Indication: Product used for unknown indication
     Dosage: 365 MG
     Route: 065
  163. OXYCODONE [Suspect]
     Active Substance: OXYCODONE
     Dosage: UNK
     Route: 065
  164. OXYCODONE HYDROCHLORIDE [Suspect]
     Active Substance: OXYCODONE HYDROCHLORIDE
     Dosage: 1 MG
     Route: 048
  165. OXYCODONE HYDROCHLORIDE [Suspect]
     Active Substance: OXYCODONE HYDROCHLORIDE
     Dosage: 40 MG, QD (1 EVERY 1 DAYS)
     Route: 066
  166. OXYCODONE HYDROCHLORIDE [Suspect]
     Active Substance: OXYCODONE HYDROCHLORIDE
     Dosage: 400 MG, QD (1 EVERY 1 DAYS)
     Route: 048
  167. OXYCODONE HYDROCHLORIDE [Suspect]
     Active Substance: OXYCODONE HYDROCHLORIDE
     Dosage: 400 MG, QD (1 EVERY 1 DAYS)
     Route: 066
  168. OXYCODONE HYDROCHLORIDE [Suspect]
     Active Substance: OXYCODONE HYDROCHLORIDE
     Dosage: 420 MG, QD (1 EVERY 1 DAYS)
     Route: 065
  169. OXYCODONE HYDROCHLORIDE [Suspect]
     Active Substance: OXYCODONE HYDROCHLORIDE
     Dosage: 400 MG, QD (1 EVERY 1 DAYS)
     Route: 065
  170. OXYCODONE HYDROCHLORIDE [Suspect]
     Active Substance: OXYCODONE HYDROCHLORIDE
     Dosage: 420 MG, QD (1 EVERY 1 DAYS)
     Route: 048
  171. OXYCODONE HYDROCHLORIDE [Suspect]
     Active Substance: OXYCODONE HYDROCHLORIDE
     Dosage: UNK
     Route: 048
  172. OXYCODONE HYDROCHLORIDE [Suspect]
     Active Substance: OXYCODONE HYDROCHLORIDE
     Indication: Rheumatoid arthritis
     Dosage: UNK
     Route: 065
  173. OXYCODONE HYDROCHLORIDE [Suspect]
     Active Substance: OXYCODONE HYDROCHLORIDE
     Dosage: UNK
     Route: 065
  174. OXYCODONE HYDROCHLORIDE [Suspect]
     Active Substance: OXYCODONE HYDROCHLORIDE
     Indication: Product used for unknown indication
     Dosage: UNK
     Route: 058
  175. OXYCODONE HYDROCHLORIDE [Suspect]
     Active Substance: OXYCODONE HYDROCHLORIDE
     Dosage: UNK
     Route: 065
  176. ORENCIA [Suspect]
     Active Substance: ABATACEPT
     Dosage: 1 DOSAGE FORM
     Route: 042
  177. ORENCIA [Suspect]
     Active Substance: ABATACEPT
     Dosage: 125 MG, QW
     Route: 058
  178. ORENCIA [Suspect]
     Active Substance: ABATACEPT
     Dosage: 17.857 MG, QD
     Route: 058
  179. ORENCIA [Suspect]
     Active Substance: ABATACEPT
     Dosage: 25 MG
     Route: 058
  180. ORENCIA [Suspect]
     Active Substance: ABATACEPT
     Dosage: 3 MG, BID
     Route: 048
  181. ORENCIA [Suspect]
     Active Substance: ABATACEPT
     Dosage: UNK
     Route: 042
  182. ORENCIA [Suspect]
     Active Substance: ABATACEPT
     Dosage: UNK
     Route: 042
  183. ORENCIA [Suspect]
     Active Substance: ABATACEPT
     Dosage: UNK
     Route: 058
  184. ORENCIA [Suspect]
     Active Substance: ABATACEPT
     Dosage: UNK
     Route: 058
  185. ORENCIA [Suspect]
     Active Substance: ABATACEPT
     Dosage: UNK
     Route: 058
  186. ORENCIA [Suspect]
     Active Substance: ABATACEPT
     Dosage: UNK
     Route: 058
  187. ORENCIA [Suspect]
     Active Substance: ABATACEPT
     Indication: Product used for unknown indication
     Dosage: UNK
     Route: 065
  188. OTEZLA [Suspect]
     Active Substance: APREMILAST
     Dosage: 1 MG, QD (1 EVERY 1 DAYS)
     Route: 048
  189. OTEZLA [Suspect]
     Active Substance: APREMILAST
     Dosage: 1 DOSAGE FORM, QD
     Route: 048
  190. OTEZLA [Suspect]
     Active Substance: APREMILAST
     Dosage: 1 DOSAGE FORM, QD
     Route: 058
  191. OTEZLA [Suspect]
     Active Substance: APREMILAST
     Dosage: 40 MG, QD (1 EVERY 1 DAYS)
     Route: 048
  192. OTEZLA [Suspect]
     Active Substance: APREMILAST
     Dosage: 40 MG, QD (1 EVERY 1 DAYS)
     Route: 048
  193. OTEZLA [Suspect]
     Active Substance: APREMILAST
     Dosage: 400 MG, QD (1 EVERY 1 DAYS)
     Route: 048
  194. OTEZLA [Suspect]
     Active Substance: APREMILAST
     Dosage: 400 MG, QD (1 EVERY 1 DAYS)
     Route: 048
  195. OTEZLA [Suspect]
     Active Substance: APREMILAST
     Indication: Rheumatoid arthritis
     Dosage: UNK
     Route: 065
  196. OTEZLA [Suspect]
     Active Substance: APREMILAST
     Dosage: UNK
     Route: 065
  197. OXYCODONE TEREPHTHALATE [Suspect]
     Active Substance: OXYCODONE TEREPHTHALATE
     Indication: Product used for unknown indication
     Dosage: UNK
     Route: 002
  198. OXYCODONE TEREPHTHALATE [Suspect]
     Active Substance: OXYCODONE TEREPHTHALATE
     Dosage: UNK
     Route: 002
  199. ACETAMINOPHEN [Suspect]
     Active Substance: ACETAMINOPHEN
     Dosage: UNK
     Route: 014
  200. ACETAMINOPHEN [Suspect]
     Active Substance: ACETAMINOPHEN
     Dosage: UNK
     Route: 042
  201. ACETAMINOPHEN [Suspect]
     Active Substance: ACETAMINOPHEN
     Indication: Product used for unknown indication
     Dosage: UNK
     Route: 065
  202. PERIOGARD [Suspect]
     Active Substance: CHLORHEXIDINE GLUCONATE
     Dosage: 500 MG, BID (2 EVERY 1 DAYS)
     Route: 048
  203. PERIOGARD [Suspect]
     Active Substance: CHLORHEXIDINE GLUCONATE
     Indication: Rheumatoid arthritis
     Dosage: 1000 MG, BID (2 EVERY 1 DAYS
     Route: 048
  204. PHENYLEPHRINE HYDROCHLORIDE [Suspect]
     Active Substance: PHENYLEPHRINE HYDROCHLORIDE
     Dosage: 45 MG
     Route: 042
  205. PHENYLEPHRINE HYDROCHLORIDE [Suspect]
     Active Substance: PHENYLEPHRINE HYDROCHLORIDE
     Indication: Product used for unknown indication
     Dosage: 45 MG
     Route: 058
  206. PHENYLEPHRINE HYDROCHLORIDE [Suspect]
     Active Substance: PHENYLEPHRINE HYDROCHLORIDE
     Dosage: UNK
     Route: 065
  207. PHTHALYLSULFATHIAZOLE [Suspect]
     Active Substance: PHTHALYLSULFATHIAZOLE
     Indication: Rheumatoid arthritis
     Dosage: UNK
     Route: 048
  208. PLAQUENIL [Suspect]
     Active Substance: HYDROXYCHLOROQUINE SULFATE
     Indication: Rheumatoid arthritis
     Dosage: 400 MG, QD(1 EVERY 1 DAYS)
     Route: 065
  209. PREDNISONE [Suspect]
     Active Substance: PREDNISONE
     Dosage: 50 MG
     Route: 065
  210. PREDNISONE [Suspect]
     Active Substance: PREDNISONE
     Dosage: UNK
     Route: 042
  211. PREDNISONE [Suspect]
     Active Substance: PREDNISONE
     Dosage: UNK
     Route: 042
  212. PREDNISONE [Suspect]
     Active Substance: PREDNISONE
     Dosage: UNK
     Route: 058
  213. PREDNISONE [Suspect]
     Active Substance: PREDNISONE
     Dosage: UNK
     Route: 058
  214. PREDNISONE [Suspect]
     Active Substance: PREDNISONE
     Indication: Product used for unknown indication
     Dosage: UNK
     Route: 065
  215. PSEUDOEPHEDRINE [Suspect]
     Active Substance: PSEUDOEPHEDRINE
     Indication: Product used for unknown indication
     Dosage: 1 DOSAGE FORM
     Route: 065
  216. PSEUDOEPHEDRINE HYDROCHLORIDE [Suspect]
     Active Substance: PSEUDOEPHEDRINE HYDROCHLORIDE
     Dosage: 40 MG, QD
     Route: 048
  217. PSEUDOEPHEDRINE HYDROCHLORIDE [Suspect]
     Active Substance: PSEUDOEPHEDRINE HYDROCHLORIDE
     Dosage: 40 MG, QD
     Route: 065
  218. PSEUDOEPHEDRINE HYDROCHLORIDE [Suspect]
     Active Substance: PSEUDOEPHEDRINE HYDROCHLORIDE
     Indication: Rheumatoid arthritis
     Dosage: 400 MG (1 EVERY 1 DAYS)
     Route: 048
  219. PSEUDOEPHEDRINE HYDROCHLORIDE [Suspect]
     Active Substance: PSEUDOEPHEDRINE HYDROCHLORIDE
     Dosage: 400 MG (1 EVERY 1 DAYS)
     Route: 065
  220. PSEUDOEPHEDRINE HYDROCHLORIDE [Suspect]
     Active Substance: PSEUDOEPHEDRINE HYDROCHLORIDE
     Dosage: 1 DOSAGE FORM, QD
     Route: 065
  221. PSEUDOEPHEDRINE HYDROCHLORIDE [Suspect]
     Active Substance: PSEUDOEPHEDRINE HYDROCHLORIDE
     Dosage: UNK
     Route: 048
  222. PSEUDOEPHEDRINE HYDROCHLORIDE [Suspect]
     Active Substance: PSEUDOEPHEDRINE HYDROCHLORIDE
     Dosage: UNK
     Route: 048
  223. PSEUDOEPHEDRINE HYDROCHLORIDE [Suspect]
     Active Substance: PSEUDOEPHEDRINE HYDROCHLORIDE
     Indication: Product used for unknown indication
     Dosage: UNK
     Route: 065
  224. RITUXIMAB [Suspect]
     Active Substance: RITUXIMAB
     Dosage: UNK
     Route: 016
  225. RITUXIMAB [Suspect]
     Active Substance: RITUXIMAB
     Dosage: UNK
     Route: 041
  226. RITUXIMAB [Suspect]
     Active Substance: RITUXIMAB
     Indication: Product used for unknown indication
     Dosage: UNK
     Route: 042
  227. RITUXIMAB [Suspect]
     Active Substance: RITUXIMAB
     Dosage: UNK
     Route: 042
  228. RITUXIMAB [Suspect]
     Active Substance: RITUXIMAB
     Dosage: UNK
     Route: 042
  229. RITUXIMAB [Suspect]
     Active Substance: RITUXIMAB
     Dosage: UNK
     Route: 043
  230. RITUXIMAB [Suspect]
     Active Substance: RITUXIMAB
     Dosage: UNK
     Route: 058
  231. RITUXIMAB [Suspect]
     Active Substance: RITUXIMAB
     Dosage: UNK
     Route: 065
  232. CETIRIZINE HYDROCHLORIDE\PSEUDOEPHEDRINE HYDROCHLORIDE [Suspect]
     Active Substance: CETIRIZINE HYDROCHLORIDE\PSEUDOEPHEDRINE HYDROCHLORIDE
     Indication: Rheumatoid arthritis
     Dosage: UNK
     Route: 065
  233. REMICADE [Suspect]
     Active Substance: INFLIXIMAB
     Dosage: 1 MG
     Route: 065
  234. REMICADE [Suspect]
     Active Substance: INFLIXIMAB
     Indication: Rheumatoid arthritis
     Dosage: 10 MG
     Route: 065
  235. REMICADE [Suspect]
     Active Substance: INFLIXIMAB
     Dosage: 25 MG
     Route: 065
  236. SARILUMAB [Suspect]
     Active Substance: SARILUMAB
     Indication: Rheumatoid arthritis
     Dosage: UNK
     Route: 065
  237. SIMPONI [Suspect]
     Active Substance: GOLIMUMAB
     Indication: Rheumatoid arthritis
     Dosage: 10 MG
     Route: 065
  238. SIMPONI [Suspect]
     Active Substance: GOLIMUMAB
     Dosage: 25 MG
     Route: 065
  239. SIMPONI [Suspect]
     Active Substance: GOLIMUMAB
     Dosage: UNK
     Route: 065
  240. GOLD SODIUM THIOMALATE [Suspect]
     Active Substance: GOLD SODIUM THIOMALATE
     Indication: Rheumatoid arthritis
     Dosage: UNK
     Route: 065
  241. GOLD SODIUM THIOMALATE [Suspect]
     Active Substance: GOLD SODIUM THIOMALATE
     Dosage: UNK
     Route: 065
  242. GOLD SODIUM THIOMALATE [Suspect]
     Active Substance: GOLD SODIUM THIOMALATE
     Dosage: UNK
     Route: 065
  243. STELARA [Suspect]
     Active Substance: USTEKINUMAB
     Dosage: 300 MG
     Route: 041
  244. STELARA [Suspect]
     Active Substance: USTEKINUMAB
     Dosage: 50 MG
     Route: 058
  245. STELARA [Suspect]
     Active Substance: USTEKINUMAB
     Dosage: 50 MG, QMO
     Route: 065
  246. STELARA [Suspect]
     Active Substance: USTEKINUMAB
     Dosage: UNK
     Route: 042
  247. STELARA [Suspect]
     Active Substance: USTEKINUMAB
     Dosage: UNK
     Route: 058
  248. STELARA [Suspect]
     Active Substance: USTEKINUMAB
     Dosage: UNK
     Route: 058
  249. STELARA [Suspect]
     Active Substance: USTEKINUMAB
     Dosage: UNK
     Route: 058
  250. STELARA [Suspect]
     Active Substance: USTEKINUMAB
     Indication: Product used for unknown indication
     Dosage: UNK MG
     Route: 042
  251. SULFAMETHOXAZOLE [Suspect]
     Active Substance: SULFAMETHOXAZOLE
     Dosage: 400 MG
     Route: 065
  252. SULFAMETHOXAZOLE [Suspect]
     Active Substance: SULFAMETHOXAZOLE
     Indication: Rheumatoid arthritis
     Dosage: UNK
     Route: 042
  253. SULFAMETHOXAZOLE AND TRIMETHOPRIM [Suspect]
     Active Substance: SULFAMETHOXAZOLE\TRIMETHOPRIM
     Dosage: 45 MG
     Route: 042
  254. SULFAMETHOXAZOLE AND TRIMETHOPRIM [Suspect]
     Active Substance: SULFAMETHOXAZOLE\TRIMETHOPRIM
     Dosage: UNK
     Route: 016
  255. SULFAMETHOXAZOLE AND TRIMETHOPRIM [Suspect]
     Active Substance: SULFAMETHOXAZOLE\TRIMETHOPRIM
     Dosage: UNK
     Route: 042
  256. SULFAMETHOXAZOLE AND TRIMETHOPRIM [Suspect]
     Active Substance: SULFAMETHOXAZOLE\TRIMETHOPRIM
     Dosage: UNK
     Route: 058
  257. SULFAMETHOXAZOLE AND TRIMETHOPRIM [Suspect]
     Active Substance: SULFAMETHOXAZOLE\TRIMETHOPRIM
     Dosage: UNK
     Route: 065
  258. SULFAMETHOXAZOLE AND TRIMETHOPRIM [Suspect]
     Active Substance: SULFAMETHOXAZOLE\TRIMETHOPRIM
     Dosage: UNK
     Route: 065
  259. SULFAMETHOXAZOLE AND TRIMETHOPRIM [Suspect]
     Active Substance: SULFAMETHOXAZOLE\TRIMETHOPRIM
     Dosage: UNK
     Route: 065
  260. SULFAMETHOXAZOLE AND TRIMETHOPRIM [Suspect]
     Active Substance: SULFAMETHOXAZOLE\TRIMETHOPRIM
     Indication: Rheumatoid arthritis
     Dosage: UNK (SOLUTION)
     Route: 058
  261. SULFASALAZINE [Suspect]
     Active Substance: SULFASALAZINE
     Dosage: 1 G, QD (1 EVERY 1 DAYS)
     Route: 065
  262. SULFASALAZINE [Suspect]
     Active Substance: SULFASALAZINE
     Dosage: 1 G, Q12H
     Route: 048
  263. SULFASALAZINE [Suspect]
     Active Substance: SULFASALAZINE
     Dosage: 1 DOSAGE FORM, Q12H
     Route: 065
  264. SULFASALAZINE [Suspect]
     Active Substance: SULFASALAZINE
     Dosage: 100 MG
     Route: 048
  265. SULFASALAZINE [Suspect]
     Active Substance: SULFASALAZINE
     Dosage: 1000 MG, Q12H
     Route: 048
  266. SULFASALAZINE [Suspect]
     Active Substance: SULFASALAZINE
     Dosage: 1 G, BID (2 EVERY 1 DAYS)
     Route: 048
  267. SULFASALAZINE [Suspect]
     Active Substance: SULFASALAZINE
     Indication: Rheumatoid arthritis
     Dosage: 1 G, BID (2 EVERY 1 DAYS)
     Route: 065
  268. SULFASALAZINE [Suspect]
     Active Substance: SULFASALAZINE
     Dosage: 2 G, QD
     Route: 048
  269. SULFASALAZINE [Suspect]
     Active Substance: SULFASALAZINE
     Dosage: 1000 MG, BID (2 EVERY 1 DAYS)
     Route: 048
  270. SULFASALAZINE [Suspect]
     Active Substance: SULFASALAZINE
     Dosage: 2000 MG
     Route: 048
  271. SULFASALAZINE [Suspect]
     Active Substance: SULFASALAZINE
     Dosage: 300 MG, QD
     Route: 048
  272. SULFASALAZINE [Suspect]
     Active Substance: SULFASALAZINE
     Dosage: UNK
     Route: 065
  273. TOCILIZUMAB [Suspect]
     Active Substance: TOCILIZUMAB
     Indication: Product used for unknown indication
     Dosage: 5 MG, BID (2 EVERY 1 DAYS)
     Route: 065
  274. TOCILIZUMAB [Suspect]
     Active Substance: TOCILIZUMAB
     Dosage: 10 MG
     Route: 065
  275. TOCILIZUMAB [Suspect]
     Active Substance: TOCILIZUMAB
     Dosage: 5 MG (1 EVERY .5 DAYS)
     Route: 065
  276. TOCILIZUMAB [Suspect]
     Active Substance: TOCILIZUMAB
     Dosage: 5 MG, QD
     Route: 065
  277. TOCILIZUMAB [Suspect]
     Active Substance: TOCILIZUMAB
     Dosage: 5 MG, QD
     Route: 065
  278. TOCILIZUMAB [Suspect]
     Active Substance: TOCILIZUMAB
     Dosage: 5 MG, Q12H
     Route: 065
  279. TOCILIZUMAB [Suspect]
     Active Substance: TOCILIZUMAB
     Dosage: 5 MG, QW
     Route: 065
  280. TOCILIZUMAB [Suspect]
     Active Substance: TOCILIZUMAB
     Dosage: UNK
     Route: 065
  281. TOCILIZUMAB [Suspect]
     Active Substance: TOCILIZUMAB
     Dosage: UNK
     Route: 065
  282. TOCILIZUMAB [Suspect]
     Active Substance: TOCILIZUMAB
     Dosage: UNK
     Route: 065
  283. TOFACITINIB [Suspect]
     Active Substance: TOFACITINIB
     Dosage: 45 MG
     Route: 042
  284. TOFACITINIB [Suspect]
     Active Substance: TOFACITINIB
     Indication: Product used for unknown indication
     Dosage: 45 MG
     Route: 058
  285. TOPICORT [Suspect]
     Active Substance: DESOXIMETASONE
     Dosage: UNK
     Route: 014
  286. TOPICORT [Suspect]
     Active Substance: DESOXIMETASONE
     Dosage: UNK
     Route: 042
  287. TOPICORT [Suspect]
     Active Substance: DESOXIMETASONE
     Indication: Rheumatoid arthritis
     Dosage: UNK
     Route: 065
  288. TOPICORT [Suspect]
     Active Substance: DESOXIMETASONE
     Dosage: UNK
     Route: 065
  289. TOPICORT [Suspect]
     Active Substance: DESOXIMETASONE
     Dosage: UNK
     Route: 065
  290. TOPICORT [Suspect]
     Active Substance: DESOXIMETASONE
     Dosage: UNK
     Route: 065
  291. TOPICORT [Suspect]
     Active Substance: DESOXIMETASONE
     Dosage: UNK
     Route: 065
  292. TOPICORT [Suspect]
     Active Substance: DESOXIMETASONE
     Dosage: UNK
     Route: 065
  293. TRAMADOL HYDROCHLORIDE [Suspect]
     Active Substance: TRAMADOL HYDROCHLORIDE
     Indication: Product used for unknown indication
     Dosage: 10 MG
     Route: 065
  294. TRAMADOL HYDROCHLORIDE [Suspect]
     Active Substance: TRAMADOL HYDROCHLORIDE
     Dosage: 10 MG
     Route: 065
  295. TRIAMCINOLONE ACETONIDE [Suspect]
     Active Substance: TRIAMCINOLONE ACETONIDE
     Indication: Product used for unknown indication
     Dosage: 1 DF
     Route: 065
  296. USTEKINUMAB [Suspect]
     Active Substance: USTEKINUMAB
     Indication: Rheumatoid arthritis
     Dosage: UNK
     Route: 065
  297. HYALURONIDASE (HUMAN RECOMBINANT) [Suspect]
     Active Substance: HYALURONIDASE (HUMAN RECOMBINANT)
     Dosage: 25 MG
     Route: 048
  298. HYALURONIDASE (HUMAN RECOMBINANT) [Suspect]
     Active Substance: HYALURONIDASE (HUMAN RECOMBINANT)
     Dosage: 25 MG
     Route: 058
  299. HYALURONIDASE (HUMAN RECOMBINANT) [Suspect]
     Active Substance: HYALURONIDASE (HUMAN RECOMBINANT)
     Dosage: UNK
     Route: 048
  300. HYALURONIDASE (HUMAN RECOMBINANT) [Suspect]
     Active Substance: HYALURONIDASE (HUMAN RECOMBINANT)
     Indication: Product used for unknown indication
     Route: 048
  301. PREDNISONE [Suspect]
     Active Substance: PREDNISONE
     Dosage: UNK
     Route: 016
  302. PREDNISONE [Suspect]
     Active Substance: PREDNISONE
     Dosage: UNK
     Route: 048
  303. PREDNISONE [Suspect]
     Active Substance: PREDNISONE
     Dosage: UNK
     Route: 058
  304. PREDNISONE [Suspect]
     Active Substance: PREDNISONE
     Indication: Product used for unknown indication
     Dosage: UNK
     Route: 065
  305. PREDNISONE [Suspect]
     Active Substance: PREDNISONE
     Dosage: UNK
     Route: 065
  306. PREDNISONE [Suspect]
     Active Substance: PREDNISONE
     Dosage: UNK
     Route: 065
  307. PREDNISONE [Suspect]
     Active Substance: PREDNISONE
     Dosage: UNK
     Route: 065
  308. Atasol [Concomitant]
     Indication: Product used for unknown indication
     Dosage: UNK
     Route: 065
  309. Atasol [Concomitant]
     Dosage: UNK
     Route: 065
  310. ATIVAN [Concomitant]
     Active Substance: LORAZEPAM
     Indication: Product used for unknown indication
     Dosage: UNK
     Route: 065
  311. CAFFEINE [Concomitant]
     Active Substance: CAFFEINE
     Indication: Rheumatoid arthritis
     Dosage: UNK
     Route: 065
  312. CALCIUM [Concomitant]
     Active Substance: CALCIUM
     Indication: Product used for unknown indication
     Dosage: UNK
     Route: 065
  313. CALCIUM [Concomitant]
     Active Substance: CALCIUM
     Dosage: UNK
     Route: 065
  314. CHOLECALCIFEROL [Concomitant]
     Active Substance: CHOLECALCIFEROL
     Indication: Product used for unknown indication
     Dosage: UNK
     Route: 065
  315. CHOLECALCIFEROL [Concomitant]
     Active Substance: CHOLECALCIFEROL
     Dosage: UNK
     Route: 065
  316. CODEINE [Concomitant]
     Active Substance: CODEINE
     Indication: Product used for unknown indication
     Dosage: UNK
     Route: 065
  317. CODEINE [Concomitant]
     Active Substance: CODEINE
     Dosage: UNK
     Route: 065
  318. CODEINE [Concomitant]
     Active Substance: CODEINE
     Dosage: UNK
     Route: 065
  319. CODEINE [Concomitant]
     Active Substance: CODEINE
     Dosage: UNK
     Route: 065
  320. CYANOCOBALAMIN [Concomitant]
     Active Substance: CYANOCOBALAMIN
     Indication: Product used for unknown indication
     Dosage: UNK
     Route: 065
  321. DESOGESTREL\ETHINYL ESTRADIOL [Concomitant]
     Active Substance: DESOGESTREL\ETHINYL ESTRADIOL
     Indication: Rheumatoid arthritis
     Dosage: 60 MG, QD
     Route: 065
  322. DESOGESTREL\ETHINYL ESTRADIOL [Concomitant]
     Active Substance: DESOGESTREL\ETHINYL ESTRADIOL
     Dosage: UNK
     Route: 065
  323. DESOXIMETASONE [Concomitant]
     Active Substance: DESOXIMETASONE
     Dosage: 25 MG
     Route: 048
  324. DESOXIMETASONE [Concomitant]
     Active Substance: DESOXIMETASONE
     Dosage: 25 MG
     Route: 048
  325. DESOXIMETASONE [Concomitant]
     Active Substance: DESOXIMETASONE
     Indication: Product used for unknown indication
     Dosage: UNK
     Route: 048
  326. DESOXIMETASONE [Concomitant]
     Active Substance: DESOXIMETASONE
     Dosage: UNK
     Route: 048
  327. DEXAMETHASONE [Concomitant]
     Active Substance: DEXAMETHASONE
     Indication: Product used for unknown indication
     Dosage: UNK
     Route: 065
  328. DEXAMETHASONE [Concomitant]
     Active Substance: DEXAMETHASONE
     Dosage: UNK
     Route: 065
  329. DEXAMETHASONE [Concomitant]
     Active Substance: DEXAMETHASONE
     Dosage: UNK
     Route: 065
  330. DOXYCYCLINE [Concomitant]
     Active Substance: DOXYCYCLINE\DOXYCYCLINE HYCLATE
     Indication: Product used for unknown indication
     Dosage: 40 MG
     Route: 065
  331. DOXYCYCLINE [Concomitant]
     Active Substance: DOXYCYCLINE\DOXYCYCLINE HYCLATE
     Dosage: UNK
     Route: 065
  332. ELBASVIR [Concomitant]
     Active Substance: ELBASVIR
     Indication: Product used for unknown indication
     Dosage: UNK
     Route: 065
  333. ERGOCALCIFEROL [Concomitant]
     Active Substance: ERGOCALCIFEROL
     Indication: Product used for unknown indication
     Dosage: UNK
     Route: 065
  334. ERGOCALCIFEROL [Concomitant]
     Active Substance: ERGOCALCIFEROL
     Dosage: UNK
     Route: 065
  335. ERGOCALCIFEROL [Concomitant]
     Active Substance: ERGOCALCIFEROL
     Dosage: UNK
     Route: 065
  336. ERGOCALCIFEROL [Concomitant]
     Active Substance: ERGOCALCIFEROL
     Dosage: UNK
     Route: 065
  337. GLUCOSAMINE [Concomitant]
     Active Substance: GLUCOSAMINE
     Indication: Product used for unknown indication
     Dosage: 1 DF, QD
     Route: 065
  338. HYDROCORTISONE ACETATE [Concomitant]
     Active Substance: HYDROCORTISONE ACETATE
     Indication: Product used for unknown indication
     Dosage: UNK
     Route: 065
  339. IBUPROFEN [Concomitant]
     Active Substance: IBUPROFEN
     Indication: Product used for unknown indication
     Dosage: UNK
     Route: 065
  340. IBUPROFEN [Concomitant]
     Active Substance: IBUPROFEN
     Dosage: UNK
     Route: 065
  341. LANSOPRAZOLE [Concomitant]
     Active Substance: LANSOPRAZOLE
     Indication: Product used for unknown indication
     Dosage: UNK
     Route: 065
  342. LEVOTHYROXINE SODIUM [Concomitant]
     Active Substance: LEVOTHYROXINE SODIUM
     Indication: Product used for unknown indication
     Dosage: UNK
     Route: 065
  343. LISINOPRIL [Concomitant]
     Active Substance: LISINOPRIL
     Indication: Product used for unknown indication
     Dosage: UNK
     Route: 065
  344. LORAZEPAM [Concomitant]
     Active Substance: LORAZEPAM
     Indication: Product used for unknown indication
     Dosage: UNK
     Route: 065
  345. MAGNESIUM [Concomitant]
     Active Substance: MAGNESIUM
     Indication: Product used for unknown indication
     Dosage: UNK
     Route: 065
  346. MARVELON [Concomitant]
     Active Substance: DESOGESTREL\ETHINYL ESTRADIOL
     Indication: Product used for unknown indication
     Dosage: UNK
     Route: 065
  347. MELOXICAM [Concomitant]
     Active Substance: MELOXICAM
     Indication: Product used for unknown indication
     Dosage: UNK
     Route: 065
  348. PANTOPRAZOLE SODIUM [Concomitant]
     Active Substance: PANTOPRAZOLE SODIUM
     Indication: Product used for unknown indication
     Dosage: UNK
     Route: 065
  349. PANTOPRAZOLE [Concomitant]
     Active Substance: PANTOPRAZOLE
     Indication: Product used for unknown indication
     Dosage: UNK
     Route: 065
  350. PANTOPRAZOLE [Concomitant]
     Active Substance: PANTOPRAZOLE
     Dosage: UNK
     Route: 065
  351. PANTOPRAZOLE [Concomitant]
     Active Substance: PANTOPRAZOLE
     Dosage: UNK
     Route: 065
  352. PANTOPRAZOLE SODIUM ANHYDROUS [Concomitant]
     Active Substance: PANTOPRAZOLE SODIUM ANHYDROUS
     Indication: Product used for unknown indication
     Dosage: UNK
     Route: 065
  353. PIROXICAM [Concomitant]
     Active Substance: PIROXICAM
     Indication: Product used for unknown indication
     Dosage: UNK
     Route: 065
  354. PREDNISOLONE [Concomitant]
     Active Substance: PREDNISOLONE
     Indication: Product used for unknown indication
     Dosage: UNK
     Route: 065
  355. PREVACID [Concomitant]
     Active Substance: LANSOPRAZOLE
     Indication: Product used for unknown indication
     Dosage: UNK
     Route: 065
  356. QUETIAPINE [Concomitant]
     Active Substance: QUETIAPINE
     Indication: Product used for unknown indication
     Dosage: UNK
     Route: 065
  357. RAMIPRIL [Concomitant]
     Active Substance: RAMIPRIL
     Indication: Product used for unknown indication
     Dosage: UNK
     Route: 065
  358. RISEDRONATE SODIUM [Concomitant]
     Active Substance: RISEDRONATE SODIUM
     Indication: Product used for unknown indication
     Dosage: UNK
     Route: 065
  359. SULFASALAZINE [Concomitant]
     Active Substance: SULFASALAZINE
     Indication: Product used for unknown indication
     Dosage: 5 MG, BID (2 EVERY 1 DAYS)
     Route: 065
  360. FISH OIL [Concomitant]
     Active Substance: FISH OIL
     Indication: Product used for unknown indication
     Dosage: UNK
     Route: 065
  361. SULFAMETHOXAZOLE AND TRIMETHOPRIM [Concomitant]
     Active Substance: SULFAMETHOXAZOLE\TRIMETHOPRIM
     Indication: Product used for unknown indication
     Dosage: UNK
     Route: 065
  362. TOFACITINIB CITRATE [Concomitant]
     Active Substance: TOFACITINIB CITRATE
     Indication: Product used for unknown indication
     Dosage: 5 MG, BID (2 EVERY 1 DAYS)
     Route: 065
  363. TOFACITINIB CITRATE [Concomitant]
     Active Substance: TOFACITINIB CITRATE
     Dosage: UNK
     Route: 065
  364. TYLENOL [Concomitant]
     Active Substance: ACETAMINOPHEN
     Indication: Product used for unknown indication
     Dosage: 5 MG, QW (1 EVERY 1 WEEKS)
     Route: 065
  365. TYLENOL WITH CODEINE [Concomitant]
     Active Substance: ACETAMINOPHEN\CODEINE PHOSPHATE
     Indication: Product used for unknown indication
     Dosage: 5 MG, BID (2 EVERY 1 DAYS)
     Route: 065
  366. TYLENOL WITH CODEINE [Concomitant]
     Active Substance: ACETAMINOPHEN\CODEINE PHOSPHATE
     Dosage: 5 MG, BID (2 EVERY 1 DAYS)
     Route: 065
  367. ALBUTEROL [Concomitant]
     Active Substance: ALBUTEROL
     Indication: Product used for unknown indication
     Dosage: UNK
     Route: 065
  368. VITAMIN C [Concomitant]
     Active Substance: ASCORBIC ACID
     Indication: Product used for unknown indication
     Dosage: 25 MG
     Route: 065
  369. VITAMIN D [Concomitant]
     Active Substance: VITAMIN D NOS
     Indication: Product used for unknown indication
     Dosage: UNK
     Route: 065
  370. VITAMIN D3 [Concomitant]
     Active Substance: CHOLECALCIFEROL
     Indication: Product used for unknown indication
     Dosage: UNK
     Route: 065
  371. XELJANZ [Concomitant]
     Active Substance: TOFACITINIB CITRATE
     Indication: Product used for unknown indication
     Dosage: UNK
     Route: 065
  372. ZESTRIL [Concomitant]
     Active Substance: LISINOPRIL
     Indication: Product used for unknown indication
     Dosage: UNK
     Route: 065
  373. ZOPICLONE [Concomitant]
     Active Substance: ZOPICLONE
     Indication: Product used for unknown indication
     Dosage: UNK
     Route: 065

REACTIONS (43)
  - Breast cancer stage III [Fatal]
  - Bursitis [Fatal]
  - Delirium [Fatal]
  - Adjustment disorder with depressed mood [Fatal]
  - Gait disturbance [Fatal]
  - Depression [Fatal]
  - Amnesia [Fatal]
  - Breast cancer stage II [Fatal]
  - Grip strength decreased [Fatal]
  - Muscular weakness [Fatal]
  - Blister [Fatal]
  - Weight decreased [Fatal]
  - Wound infection [Fatal]
  - Nail disorder [Fatal]
  - Bone erosion [Fatal]
  - Hepatic cirrhosis [Fatal]
  - Crohn^s disease [Fatal]
  - Joint stiffness [Fatal]
  - Laryngitis [Fatal]
  - Type 2 diabetes mellitus [Fatal]
  - Lupus-like syndrome [Fatal]
  - Red blood cell sedimentation rate increased [Fatal]
  - Exostosis [Fatal]
  - Contraindicated product administered [Fatal]
  - Nausea [Fatal]
  - Dizziness [Fatal]
  - Duodenal ulcer perforation [Fatal]
  - Pemphigus [Fatal]
  - Systemic lupus erythematosus [Fatal]
  - Inflammation [Fatal]
  - Hypoaesthesia [Fatal]
  - Blepharospasm [Fatal]
  - Breast cancer stage III [Fatal]
  - Epilepsy [Fatal]
  - Gastrooesophageal reflux disease [Fatal]
  - Hypercholesterolaemia [Fatal]
  - Joint range of motion decreased [Fatal]
  - Live birth [Fatal]
  - Product quality issue [Fatal]
  - Taste disorder [Fatal]
  - Ear pain [Unknown]
  - Medication error [Unknown]
  - Ulcer haemorrhage [Not Recovered/Not Resolved]
